FAERS Safety Report 9632842 (Version 1)
Quarter: 2013Q4

REPORT INFORMATION
  Report Type: Spontaneous
  Country: ID (occurrence: ID)
  Receive Date: 20131018
  Receipt Date: 20131018
  Transmission Date: 20140711
  Serious: Yes (Life-Threatening, Hospitalization)
  Sender: FDA-Public Use
  Company Number: ID-ASTRAZENECA-2013SE76349

PATIENT
  Sex: Male

DRUGS (6)
  1. BRILINTA [Suspect]
     Dosage: LOADING DOSE
     Route: 048
  2. BRILINTA [Suspect]
     Route: 048
  3. CLOPIDOGREL [Concomitant]
  4. ASPIRIN [Concomitant]
  5. ARIXTRA [Concomitant]
  6. PLETAAL [Concomitant]

REACTIONS (2)
  - Anaemia [Unknown]
  - Haematuria [Unknown]
